FAERS Safety Report 6667104-4 (Version None)
Quarter: 2010Q2

REPORT INFORMATION
  Report Type: 
  Country: None (occurrence: None)
  Receive Date: 20100405
  Receipt Date: 20100329
  Transmission Date: 20101027
  Serious: Yes (Hospitalization)
  Sender: FDA-Public Use
  Company Number: BE-BRISTOL-MYERS SQUIBB COMPANY-15043300

PATIENT
  Age: 18 Year
  Sex: Female

DRUGS (1)
  1. IRBESARTAN [Suspect]
     Dates: end: 20100201

REACTIONS (2)
  - HOSPITALISATION [None]
  - PREGNANCY [None]
